FAERS Safety Report 23914215 (Version 3)
Quarter: 2024Q2

REPORT INFORMATION
  Report Type: Spontaneous
  Country: AT (occurrence: AT)
  Receive Date: 20240529
  Receipt Date: 20240621
  Transmission Date: 20240715
  Serious: Yes (Hospitalization)
  Sender: FDA-Public Use
  Company Number: AT-KEDRION-009293

PATIENT
  Sex: Male

DRUGS (4)
  1. COAGADEX [Suspect]
     Active Substance: COAGULATION FACTOR X HUMAN
     Indication: Factor X deficiency
     Dosage: 2000 IE EVERY 7 DAYS, AS SLOW INFUSION
     Route: 042
     Dates: start: 20240328
  2. Cyclokapron 500 [Concomitant]
     Indication: Product used for unknown indication
     Route: 065
  3. Pantoloc 40 [Concomitant]
     Indication: Product used for unknown indication
     Route: 065
  4. FOLIC ACID [Concomitant]
     Active Substance: FOLIC ACID
     Indication: Product used for unknown indication
     Route: 065

REACTIONS (1)
  - Atrioventricular block complete [Recovered/Resolved]

NARRATIVE: CASE EVENT DATE: 20240427
